FAERS Safety Report 9870475 (Version 1)
Quarter: 2014Q1

REPORT INFORMATION
  Report Type: Spontaneous
  Country: US (occurrence: None)
  Receive Date: 20140203
  Receipt Date: 20140203
  Transmission Date: 20141002
  Serious: Yes (Death)
  Sender: FDA-Public Use
  Company Number: NSR_01326_2014

PATIENT
  Age: 51 Year
  Sex: Male

DRUGS (10)
  1. BACLOFEN [Suspect]
     Dosage: DF ORAL
     Route: 048
  2. OXYCODONE [Suspect]
     Dosage: DF, ORAL
     Route: 048
  3. MORPHINE [Suspect]
     Dosage: DF ORAL
     Route: 048
  4. DIAZEPAM [Suspect]
     Dosage: DF ORAL
  5. METAXALONE [Suspect]
     Dosage: DF ORAL
     Route: 048
  6. DULOXETINE [Suspect]
     Dosage: DF ORAL
     Route: 048
  7. OMEPRAZOLE [Suspect]
     Dosage: DF ORAL
     Route: 048
  8. FINASTERIDE [Suspect]
     Dosage: DF ORAL
  9. GABAPENTIN [Suspect]
     Dosage: DF ORAL
     Route: 048
  10. NIACIN [Suspect]
     Dosage: DF ORAL
     Route: 048

REACTIONS (1)
  - Intentional drug misuse [None]
